FAERS Safety Report 13129359 (Version 1)
Quarter: 2017Q1

REPORT INFORMATION
  Report Type: Spontaneous
  Country: US (occurrence: US)
  Receive Date: 20170117
  Receipt Date: 20170117
  Transmission Date: 20170428
  Serious: Yes (Other)
  Sender: FDA-Public Use
  Company Number: None

PATIENT
  Age: 66 Year
  Sex: Female

DRUGS (14)
  1. MELOXICAM. [Concomitant]
     Active Substance: MELOXICAM
  2. HYDROMORPHONE [Concomitant]
     Active Substance: HYDROMORPHONE
  3. ONDANSETRON [Concomitant]
     Active Substance: ONDANSETRON
  4. METHYLPHENIDATE. [Concomitant]
     Active Substance: METHYLPHENIDATE
  5. BACLOFEN. [Concomitant]
     Active Substance: BACLOFEN
  6. PROCHLORPERAZINE. [Concomitant]
     Active Substance: PROCHLORPERAZINE
  7. BUPROPION. [Concomitant]
     Active Substance: BUPROPION
  8. GABAPENTIN. [Concomitant]
     Active Substance: GABAPENTIN
  9. AMPYRA [Suspect]
     Active Substance: DALFAMPRIDINE
     Indication: MULTIPLE SCLEROSIS
     Route: 048
     Dates: start: 201106
  10. DIAZEPAM. [Concomitant]
     Active Substance: DIAZEPAM
  11. ANASTROZOLE. [Concomitant]
     Active Substance: ANASTROZOLE
  12. DULOXETINE. [Concomitant]
     Active Substance: DULOXETINE
  13. CITALOPRAM [Concomitant]
     Active Substance: CITALOPRAM HYDROBROMIDE
  14. NIFEDIPINE. [Concomitant]
     Active Substance: NIFEDIPINE

REACTIONS (4)
  - Neutrophil count increased [None]
  - Lymphocyte count increased [None]
  - White blood cell count increased [None]
  - Laboratory test abnormal [None]

NARRATIVE: CASE EVENT DATE: 20161229
